FAERS Safety Report 5292535-7 (Version None)
Quarter: 2007Q2

REPORT INFORMATION
  Report Type: 
  Country: None (occurrence: None)
  Receive Date: 20070410
  Receipt Date: 20070402
  Transmission Date: 20071010
  Serious: Yes (Other)
  Sender: FDA-Public Use
  Company Number: US-PFIZER INC-2007026374

PATIENT
  Sex: Female

DRUGS (3)
  1. GEODON [Suspect]
     Indication: BIPOLAR DISORDER
  2. LITHIUM CARBONATE [Concomitant]
  3. ANTIBIOTICS [Concomitant]
     Indication: SINUSITIS

REACTIONS (2)
  - BLINDNESS [None]
  - VISUAL DISTURBANCE [None]
